FAERS Safety Report 17505583 (Version 3)
Quarter: 2020Q1

REPORT INFORMATION
  Report Type: Spontaneous
  Country: GB (occurrence: GB)
  Receive Date: 20200306
  Receipt Date: 20200323
  Transmission Date: 20200409
  Serious: Yes (Hospitalization)
  Sender: FDA-Public Use
  Company Number: GB-JNJFOC-20200300470

PATIENT
  Age: 5 Year
  Sex: Female

DRUGS (1)
  1. CALPOL [Suspect]
     Active Substance: ACETAMINOPHEN
     Indication: ACCIDENTAL EXPOSURE TO PRODUCT
     Dosage: 100ML USED ONCE ,OVERDOSED
     Route: 048

REACTIONS (2)
  - Accidental overdose [Unknown]
  - Product container seal issue [Unknown]

NARRATIVE: CASE EVENT DATE: 202002
